FAERS Safety Report 6997295-7 (Version None)
Quarter: 2010Q3

REPORT INFORMATION
  Report Type: 
  Country: None (occurrence: None)
  Receive Date: 20100918
  Receipt Date: 20091005
  Transmission Date: 20110219
  Serious: No
  Sender: FDA-Public Use
  Company Number: US-WYE-H11440409

PATIENT
  Sex: Female
  Weight: 79 kg

DRUGS (4)
  1. PRISTIQ [Suspect]
     Indication: FIBROMYALGIA
     Route: 048
     Dates: start: 20090901
  2. FLEXERIL [Concomitant]
  3. IBUPROFEN [Concomitant]
  4. AMBIEN [Concomitant]

REACTIONS (7)
  - ANXIETY [None]
  - DECREASED APPETITE [None]
  - FATIGUE [None]
  - HEADACHE [None]
  - HYPERHIDROSIS [None]
  - INSOMNIA [None]
  - NIGHTMARE [None]
